FAERS Safety Report 12076347 (Version 1)
Quarter: 2016Q1

REPORT INFORMATION
  Report Type: Report from Study
  Country: GB (occurrence: GB)
  Receive Date: 20160215
  Receipt Date: 20160215
  Transmission Date: 20160526
  Serious: Yes (Hospitalization, Other)
  Sender: FDA-Public Use
  Company Number: GB-BRISTOL-MYERS SQUIBB COMPANY-20651535

PATIENT
  Age: 2 Day
  Sex: Female

DRUGS (2)
  1. BLINDED METFORMIN HYDROCHLORIDE [Suspect]
     Active Substance: METFORMIN HYDROCHLORIDE
     Indication: PRODUCT USED FOR UNKNOWN INDICATION
     Dosage: 500 MG, UNK
     Route: 064
     Dates: start: 20131012, end: 20140312
  2. BLINDED PLACEBO [Suspect]
     Active Substance: INVESTIGATIONAL PRODUCT
     Indication: PRODUCT USED FOR UNKNOWN INDICATION
     Dosage: 500 MG, UNK
     Route: 064
     Dates: start: 20131012, end: 20140312

REACTIONS (7)
  - Body mass index decreased [Recovered/Resolved]
  - Feeding disorder [Recovered/Resolved]
  - Blood lactic acid increased [Recovered/Resolved]
  - Drug withdrawal syndrome neonatal [Unknown]
  - Feeling jittery [Recovered/Resolved]
  - Hypoglycaemia [Recovered/Resolved]
  - Foetal exposure during pregnancy [Unknown]

NARRATIVE: CASE EVENT DATE: 20140320
